FAERS Safety Report 23237405 (Version 2)
Quarter: 2023Q4

REPORT INFORMATION
  Report Type: Spontaneous
  Country: US (occurrence: US)
  Receive Date: 20231128
  Receipt Date: 20231204
  Transmission Date: 20240110
  Serious: Yes (Other)
  Sender: FDA-Public Use
  Company Number: US-PFIZER INC-PV202300191012

PATIENT
  Age: 23 Year
  Sex: Female
  Weight: 111 kg

DRUGS (1)
  1. TESTOSTERONE CYPIONATE [Suspect]
     Active Substance: TESTOSTERONE CYPIONATE
     Indication: Transgender hormonal therapy
     Dosage: UNK

REACTIONS (5)
  - Polycystic ovarian syndrome [Recovered/Resolved]
  - Virilism [Recovered/Resolved]
  - Affective disorder [Recovered/Resolved]
  - Anger [Recovered/Resolved]
  - Irritability [Recovered/Resolved]
